FAERS Safety Report 5402135-3 (Version None)
Quarter: 2007Q3

REPORT INFORMATION
  Report Type: 
  Country: None (occurrence: None)
  Receive Date: 20070730
  Receipt Date: 20070718
  Transmission Date: 20080115
  Serious: Yes (Hospitalization)
  Sender: FDA-Public Use
  Company Number: 2007US001665

PATIENT
  Age: 8 Year
  Sex: Male
  Weight: 15 kg

DRUGS (7)
  1. PROGRAF [Suspect]
     Indication: PROPHYLAXIS AGAINST TRANSPLANT REJECTION
     Dosage: SEE IMAGE
     Route: 048
     Dates: start: 20060901, end: 20060930
  2. PREVACID [Concomitant]
  3. ASPIRIN [Concomitant]
  4. MULTI-VIT (VITAMINS NOS) [Concomitant]
  5. FERROUS SULFATE TAB [Concomitant]
  6. MAGNESIUM OXIDE (MAGNESIUM OXIDE) [Concomitant]
  7. MYCOPHENOLATE MOFETIL [Concomitant]

REACTIONS (6)
  - DRUG DISPENSING ERROR [None]
  - DRUG LEVEL BELOW THERAPEUTIC [None]
  - DRUG TOXICITY [None]
  - IMMUNOSUPPRESSANT DRUG LEVEL DECREASED [None]
  - IMMUNOSUPPRESSANT DRUG LEVEL INCREASED [None]
  - MEDICATION ERROR [None]
